FAERS Safety Report 14206283 (Version 2)
Quarter: 2017Q4

REPORT INFORMATION
  Report Type: Report from Study
  Country: US (occurrence: US)
  Receive Date: 20171120
  Receipt Date: 20171218
  Transmission Date: 20180321
  Serious: Yes (Other)
  Sender: FDA-Public Use
  Company Number: US-TESARO, INC-US-2017TSO04016

PATIENT

DRUGS (2)
  1. ZEJULA [Suspect]
     Active Substance: NIRAPARIB
     Indication: OVARIAN CANCER
     Dosage: 300 MG, QD
     Route: 048
     Dates: start: 20170721
  2. ZEJULA [Suspect]
     Active Substance: NIRAPARIB
     Dosage: 300 MG, QD
     Route: 048

REACTIONS (8)
  - Laboratory test abnormal [Unknown]
  - Diastolic dysfunction [Unknown]
  - Somnolence [Unknown]
  - Tricuspid valve incompetence [Unknown]
  - Blood pressure increased [Not Recovered/Not Resolved]
  - Insomnia [Not Recovered/Not Resolved]
  - Hepatic enzyme increased [Not Recovered/Not Resolved]
  - Left ventricular hypertrophy [Not Recovered/Not Resolved]
